FAERS Safety Report 8339380 (Version 2)
Quarter: 2013Q2

REPORT INFORMATION
  Report Type: Spontaneous
  Country: US (occurrence: US)
  Receive Date: 20120117
  Receipt Date: 20130417
  Transmission Date: 20140414
  Serious: Yes (Other)
  Sender: FDA-Public Use
  Company Number: US-ROCHE-794834

PATIENT
  Age: 17 Year
  Sex: Male
  Weight: 65.83 kg

DRUGS (3)
  1. ACCUTANE [Suspect]
     Indication: ACNE
     Dosage: 20MG AND 40 MG: STRENGTH
     Route: 048
     Dates: start: 20030221, end: 20030321
  2. ACCUTANE [Suspect]
     Dosage: 20MG AND 40 MG: STRENGTH
     Route: 048
     Dates: start: 20030415, end: 20030720
  3. ACCUTANE [Suspect]
     Dosage: 20MG AND 40 MG: STRENGTH
     Route: 048
     Dates: start: 20030909, end: 20031009

REACTIONS (7)
  - Colitis ulcerative [Unknown]
  - Inflammatory bowel disease [Unknown]
  - Stress [Unknown]
  - Crohn^s disease [Unknown]
  - Irritable bowel syndrome [Unknown]
  - Hyperhidrosis [Unknown]
  - Dry skin [Unknown]
